FAERS Safety Report 8206440-7 (Version None)
Quarter: 2012Q1

REPORT INFORMATION
  Report Type: 
  Country: None (occurrence: None)
  Receive Date: 20120313
  Receipt Date: 20120307
  Transmission Date: 20120608
  Serious: Yes (Other)
  Sender: FDA-Public Use
  Company Number: US-ROCHE-1046984

PATIENT
  Sex: Female

DRUGS (2)
  1. PEGASYS [Suspect]
     Indication: HEPATITIS C
     Route: 058
     Dates: start: 20110521
  2. COPEGUS [Suspect]
     Indication: HEPATITIS C
     Dates: start: 20110521

REACTIONS (2)
  - LABORATORY TEST ABNORMAL [None]
  - LYMPHADENOPATHY [None]
